FAERS Safety Report 23128446 (Version 1)
Quarter: 2023Q4

REPORT INFORMATION
  Report Type: Report from Study
  Country: US (occurrence: US)
  Receive Date: 20231031
  Receipt Date: 20231031
  Transmission Date: 20240109
  Serious: Yes (Other)
  Sender: FDA-Public Use
  Company Number: US-GILEAD-2023-0648307

PATIENT
  Age: 38 Year
  Sex: Female

DRUGS (2)
  1. AZTREONAM LYSINE [Suspect]
     Active Substance: AZTREONAM LYSINE
     Indication: Cystic fibrosis
     Dosage: 75MG INHALE VIA NEBULIZER 3 TIMES DAILY FOR 28 DAYS ON AND 28 DAYS OFF, ALTERNATING
     Route: 055
     Dates: start: 20170224
  2. TOBRAMYCIN [Concomitant]
     Active Substance: TOBRAMYCIN
     Dosage: UNK

REACTIONS (2)
  - Central venous catheterisation [Unknown]
  - Cough [Not Recovered/Not Resolved]
